FAERS Safety Report 5606366-9 (Version None)
Quarter: 2008Q1

REPORT INFORMATION
  Report Type: 
  Country: None (occurrence: None)
  Receive Date: 20080129
  Receipt Date: 20070725
  Transmission Date: 20080703
  Serious: No
  Sender: FDA-Public Use
  Company Number: A0667125A

PATIENT
  Age: 40 Year
  Sex: Female
  Weight: 52.3 kg

DRUGS (3)
  1. WELLBUTRIN [Suspect]
     Indication: DEPRESSION
     Dosage: 300MG PER DAY
     Route: 048
     Dates: start: 20061201
  2. PROVIGIL [Suspect]
     Indication: MULTIPLE SCLEROSIS
     Dosage: 200MG IN THE MORNING
     Route: 048
     Dates: start: 20070309
  3. ROZEREM [Suspect]
     Indication: SLEEP DISORDER
     Dosage: 8MG AT NIGHT
     Route: 048
     Dates: start: 20070301

REACTIONS (2)
  - DRUG INTERACTION [None]
  - MOOD SWINGS [None]
